FAERS Safety Report 16760191 (Version 12)
Quarter: 2023Q4

REPORT INFORMATION
  Report Type: Spontaneous
  Country: US (occurrence: US)
  Receive Date: 20190830
  Receipt Date: 20231115
  Transmission Date: 20240110
  Serious: No
  Sender: FDA-Public Use
  Company Number: US-PFIZER INC-2019367831

PATIENT
  Age: 65 Year
  Sex: Male

DRUGS (2)
  1. CAVERJECT [Suspect]
     Active Substance: ALPROSTADIL
     Indication: Erectile dysfunction
     Dosage: 20 UG, TITRATE AS NEEDED (DO NOT INJECT MORE THAN ONCE IN 24 HOURS)
     Route: 017
  2. CAVERJECT [Suspect]
     Active Substance: ALPROSTADIL
     Dosage: 20 UG INTERCAVERNOSALLY PRN; TITRATE AS NEEDED. DO NOT INJECT MORE THAN ONCE IN 24 HOUR)
     Route: 017

REACTIONS (1)
  - Therapeutic product effect incomplete [Recovered/Resolved]
